FAERS Safety Report 7093972-0 (Version None)
Quarter: 2010Q4

REPORT INFORMATION
  Report Type: 
  Country: None (occurrence: None)
  Receive Date: 20101110
  Receipt Date: 20101108
  Transmission Date: 20110411
  Serious: Yes (Death)
  Sender: FDA-Public Use
  Company Number: BR-PFIZER INC-2010143453

PATIENT
  Age: 88 Year
  Sex: Female

DRUGS (1)
  1. GENOTROPIN [Suspect]
     Dosage: UNK
     Route: 058

REACTIONS (1)
  - DEATH [None]
